FAERS Safety Report 19460001 (Version 1)
Quarter: 2021Q2

REPORT INFORMATION
  Report Type: Spontaneous
  Country: PT (occurrence: PT)
  Receive Date: 20210625
  Receipt Date: 20210625
  Transmission Date: 20210717
  Serious: Yes (Death, Hospitalization, Other)
  Sender: FDA-Public Use
  Company Number: PT-CELLTRION INC.-2020PT035098

PATIENT

DRUGS (15)
  1. RITUXIMAB (UNKNOWN) [Suspect]
     Active Substance: RITUXIMAB
     Indication: B-CELL LYMPHOMA
     Dosage: UNK, COMPLETED 7 DAYS OF THERAPY
  2. RITUXIMAB (UNKNOWN) [Suspect]
     Active Substance: RITUXIMAB
     Dosage: UNK
     Route: 065
  3. CICLOFOSFAMIDE [Suspect]
     Active Substance: CYCLOPHOSPHAMIDE
     Dosage: UNK
     Route: 065
  4. PROCARBAZINE [PROCARBAZINE HYDROCHLORIDE] [Suspect]
     Active Substance: PROCARBAZINE HYDROCHLORIDE
     Indication: FOLLICULAR LYMPHOMA
     Dosage: UNK, COMPLETED 7 DAYS OF THERAPY
  5. PREDNISOLONE. [Suspect]
     Active Substance: PREDNISOLONE
     Dosage: UNK
     Route: 065
  6. CICLOFOSFAMIDE [Suspect]
     Active Substance: CYCLOPHOSPHAMIDE
     Indication: FOLLICULAR LYMPHOMA
     Dosage: UNK, COMPLETED 7 DAYS OF THERAPY
  7. PROCARBAZINE [PROCARBAZINE HYDROCHLORIDE] [Suspect]
     Active Substance: PROCARBAZINE HYDROCHLORIDE
     Dosage: UNK
     Route: 065
  8. RITUXIMAB (UNKNOWN) [Suspect]
     Active Substance: RITUXIMAB
     Indication: NON-HODGKIN^S LYMPHOMA
     Dosage: DURATION OF DRUG ADMINISTRATION: 7 DAYS
  9. CICLOFOSFAMIDE [Suspect]
     Active Substance: CYCLOPHOSPHAMIDE
     Indication: NON-HODGKIN^S LYMPHOMA
     Dosage: DURATION OF DRUG ADMINISTRATION: 7 DAYS
  10. PROCARBAZINE [PROCARBAZINE HYDROCHLORIDE] [Suspect]
     Active Substance: PROCARBAZINE HYDROCHLORIDE
     Indication: NON-HODGKIN^S LYMPHOMA
     Dosage: DURATION OF DRUG ADMINISTRATION: 7 DAYS
  11. ETOPOSIDE. [Suspect]
     Active Substance: ETOPOSIDE
     Indication: NON-HODGKIN^S LYMPHOMA
     Dosage: DURATION OF DRUG ADMINISTRATION: 7 DAYS
  12. ETOPOSIDE. [Suspect]
     Active Substance: ETOPOSIDE
     Indication: FOLLICULAR LYMPHOMA
     Dosage: UNK, COMPLETED 7 DAYS OF THERAPY
  13. PREDNISOLONE. [Suspect]
     Active Substance: PREDNISOLONE
     Indication: FOLLICULAR LYMPHOMA
     Dosage: UNK, COMPLETED 7 DAYS OF THERAPY
  14. PREDNISOLONE. [Suspect]
     Active Substance: PREDNISOLONE
     Indication: NON-HODGKIN^S LYMPHOMA
     Dosage: DURATION OF DRUG ADMINISTRATION: 7 DAYS
  15. ETOPOSIDE. [Suspect]
     Active Substance: ETOPOSIDE
     Dosage: UNK
     Route: 065

REACTIONS (8)
  - Condition aggravated [Fatal]
  - Hemiplegia [Unknown]
  - Seizure [Not Recovered/Not Resolved]
  - Haematotoxicity [Fatal]
  - Death [Fatal]
  - Cerebral haematoma [Fatal]
  - Off label use [Unknown]
  - Brain oedema [Fatal]
